FAERS Safety Report 9361990 (Version 1)
Quarter: 2013Q2

REPORT INFORMATION
  Report Type: Spontaneous
  Country: FR (occurrence: FR)
  Receive Date: 20130621
  Receipt Date: 20130621
  Transmission Date: 20140414
  Serious: Yes (Hospitalization)
  Sender: FDA-Public Use
  Company Number: FR-PFIZER INC-2013046908

PATIENT
  Age: 12 Year
  Sex: Male
  Weight: 42.6 kg

DRUGS (8)
  1. ADVIL [Suspect]
     Indication: COUGH
     Dosage: UNK
     Dates: start: 201212, end: 20130119
  2. ADVIL [Suspect]
     Indication: HEADACHE
  3. DOLIPRANE [Concomitant]
     Indication: PYREXIA
     Dosage: 500 MG, 4X/DAY(500MG IN 4 INTAKES)
     Route: 048
     Dates: start: 20130112, end: 20130119
  4. MAXILASE [Concomitant]
     Indication: UPPER RESPIRATORY TRACT CONGESTION
     Dosage: 2 DF, 3X/DAY(6 TEASPOONS A DAY IN 3 INTAKES)
     Route: 048
     Dates: start: 20121230, end: 20130119
  5. RHINOTROPHYL [Concomitant]
     Indication: COUGH
     Dosage: UNK
     Dates: start: 201212, end: 20130119
  6. RHINOTROPHYL [Concomitant]
     Indication: HEADACHE
  7. NECYRANE [Concomitant]
     Indication: COUGH
     Dosage: UNK
     Route: 045
     Dates: start: 201212, end: 20130119
  8. NECYRANE [Concomitant]
     Indication: HEADACHE

REACTIONS (9)
  - Drug reaction with eosinophilia and systemic symptoms [Recovering/Resolving]
  - Hepatocellular injury [Recovering/Resolving]
  - Weight decreased [Unknown]
  - Condition aggravated [Unknown]
  - Rash macular [Recovering/Resolving]
  - Pyrexia [Recovered/Resolved]
  - Erythema [Recovering/Resolving]
  - Influenza [Unknown]
  - Transaminases increased [Unknown]
